FAERS Safety Report 12009976 (Version 1)
Quarter: 2016Q1

REPORT INFORMATION
  Report Type: Spontaneous
  Country: ES (occurrence: ES)
  Receive Date: 20160205
  Receipt Date: 20160205
  Transmission Date: 20160526
  Serious: Yes (Other)
  Sender: FDA-Public Use
  Company Number: ES-CIPLA LTD.-2016ES00705

PATIENT

DRUGS (4)
  1. AMLODIPINE [Suspect]
     Active Substance: AMLODIPINE BESYLATE
     Route: 065
  2. ALPROSTADIL. [Suspect]
     Active Substance: ALPROSTADIL
     Dosage: 60 MCG FOR 21 DAYS
     Route: 042
  3. RITUXIMAB [Suspect]
     Active Substance: RITUXIMAB
     Dosage: 375 MG/M2 ONCE WEEKLY FOR 4 CYCLES
     Route: 065
  4. CYCLOPHOSPHAMIDE. [Suspect]
     Active Substance: CYCLOPHOSPHAMIDE
     Dosage: 750 MG/M2, EVERY 15 DAYS FOR 3 DOSES
     Route: 065

REACTIONS (1)
  - Drug ineffective [Unknown]
